FAERS Safety Report 5959719-3 (Version None)
Quarter: 2008Q4

REPORT INFORMATION
  Report Type: 
  Country: None (occurrence: None)
  Receive Date: 20081120
  Receipt Date: 20081112
  Transmission Date: 20090506
  Serious: Yes (Hospitalization)
  Sender: FDA-Public Use
  Company Number: US-GENENTECH-256121

PATIENT
  Age: 50 Year
  Sex: Female
  Weight: 58.1 kg

DRUGS (13)
  1. BEVACIZUMAB [Suspect]
     Indication: BREAST CANCER
     Dosage: 15 MG/KG, UNK
     Route: 042
     Dates: start: 20070111, end: 20080108
  2. DOCETAXEL [Suspect]
     Indication: BREAST CANCER
     Dosage: 75 MG/M2, UNK
     Route: 042
     Dates: start: 20070111, end: 20070501
  3. CARBOPLATIN [Suspect]
     Indication: BREAST CANCER
     Dosage: 50 MG/ML, UNK
     Dates: start: 20070111, end: 20070501
  4. CYCLOPHOSPHAMIDE [Suspect]
     Indication: BREAST CANCER
     Dosage: 500 MG/M2, UNK
     Dates: start: 20070111, end: 20070501
  5. NEXIUM [Concomitant]
     Indication: DRUG USE FOR UNKNOWN INDICATION
  6. METOPROLOL TARTRATE [Concomitant]
     Indication: DRUG USE FOR UNKNOWN INDICATION
  7. COUMADIN [Concomitant]
     Indication: DRUG USE FOR UNKNOWN INDICATION
  8. ARANESP [Concomitant]
     Indication: DRUG USE FOR UNKNOWN INDICATION
  9. COMPAZINE [Concomitant]
     Indication: DRUG USE FOR UNKNOWN INDICATION
  10. EMEND [Concomitant]
     Indication: DRUG USE FOR UNKNOWN INDICATION
  11. LORTAB [Concomitant]
     Indication: DRUG USE FOR UNKNOWN INDICATION
  12. MAGIC MOUTHWASH (BENADRYL, CARAFATE, XYLOCAIN [Concomitant]
     Indication: DRUG USE FOR UNKNOWN INDICATION
  13. PROTONIX [Concomitant]
     Indication: DRUG USE FOR UNKNOWN INDICATION

REACTIONS (1)
  - SUPERIOR VENA CAVAL OCCLUSION [None]
